FAERS Safety Report 18069010 (Version 1)
Quarter: 2020Q3

REPORT INFORMATION
  Report Type: Report from Study
  Country: CN (occurrence: CN)
  Receive Date: 20200725
  Receipt Date: 20200725
  Transmission Date: 20201103
  Serious: Yes (Other)
  Sender: FDA-Public Use
  Company Number: NVSC2020CN205349

PATIENT
  Age: 31 Year
  Sex: Female

DRUGS (1)
  1. GLIVEC [Suspect]
     Active Substance: IMATINIB MESYLATE
     Indication: PRODUCT USED FOR UNKNOWN INDICATION
     Dosage: UNK
     Route: 065
     Dates: start: 201301, end: 202003

REACTIONS (3)
  - Disease recurrence [Unknown]
  - Drug resistance [Unknown]
  - Disease progression [Unknown]

NARRATIVE: CASE EVENT DATE: 20200327
